FAERS Safety Report 4625308-6 (Version None)
Quarter: 2005Q1

REPORT INFORMATION
  Report Type: 
  Country: None (occurrence: None)
  Receive Date: 20050107
  Receipt Date: 20041109
  Transmission Date: 20050727
  Serious: No
  Sender: FDA-Public Use
  Company Number: 235677K04USA

PATIENT
  Age: 66 Year
  Sex: Female

DRUGS (1)
  1. REBIF [Suspect]
     Indication: MULTIPLE SCLEROSIS
     Dosage: 44 M CG, 3 IN 1 WEEKS, SUBCUTANEOUS
     Route: 058
     Dates: start: 20040823, end: 20041101

REACTIONS (5)
  - HYPERTONIC BLADDER [None]
  - NERVOUS SYSTEM DISORDER [None]
  - POLLAKIURIA [None]
  - URINARY INCONTINENCE [None]
  - URINARY RETENTION [None]
